FAERS Safety Report 11379131 (Version 1)
Quarter: 2015Q3

REPORT INFORMATION
  Report Type: Spontaneous
  Country: US (occurrence: None)
  Receive Date: 20150813
  Receipt Date: 20150813
  Transmission Date: 20151125
  Serious: Yes (Disabling)
  Sender: FDA-Public Use
  Company Number: None

PATIENT
  Age: 42 Year
  Sex: Female
  Weight: 59.19 kg

DRUGS (7)
  1. FLUOXETINE [Suspect]
     Active Substance: FLUOXETINE\FLUOXETINE HYDROCHLORIDE
     Indication: DEPRESSION
     Dosage: 1 PILL
     Route: 048
     Dates: start: 20091001, end: 20130101
  2. VITAMIN D [Concomitant]
     Active Substance: CHOLECALCIFEROL
  3. MAGNESIUM [Concomitant]
     Active Substance: MAGNESIUM
  4. SUPER B-12 COMPLEX [Concomitant]
  5. CLARITIN [Concomitant]
     Active Substance: LORATADINE
  6. NEURONTIN [Concomitant]
     Active Substance: GABAPENTIN
  7. DIAZEPAM. [Concomitant]
     Active Substance: DIAZEPAM

REACTIONS (4)
  - Paraesthesia [None]
  - Neuralgia [None]
  - Hypoaesthesia [None]
  - Vibratory sense increased [None]

NARRATIVE: CASE EVENT DATE: 20130303
